FAERS Safety Report 8448845-5 (Version None)
Quarter: 2012Q2

REPORT INFORMATION
  Report Type: 
  Country: None (occurrence: None)
  Receive Date: 20120611
  Receipt Date: 20120525
  Transmission Date: 20120825
  Serious: Yes (Other)
  Sender: FDA-Public Use
  Company Number: 2012000135

PATIENT
  Age: 42 Year
  Sex: Male
  Weight: 86.5 kg

DRUGS (2)
  1. ACEON [Suspect]
     Indication: HYPERTENSION
     Dosage: 4 MG, QD, ORAL
     Route: 048
     Dates: start: 20120119, end: 20120301
  2. COVERSYL PLUS HD (INDAPAMIDE, PERINDOPRIL ERBUMINE) [Suspect]
     Indication: HYPERTENSION
     Dosage: 1 UT, QD
     Dates: start: 20120302, end: 20120327

REACTIONS (2)
  - BLOOD PRESSURE INADEQUATELY CONTROLLED [None]
  - DRUG INEFFECTIVE [None]
